FAERS Safety Report 6152678-2 (Version None)
Quarter: 2009Q2

REPORT INFORMATION
  Report Type: 
  Country: None (occurrence: None)
  Receive Date: 20090413
  Receipt Date: 20090330
  Transmission Date: 20091009
  Serious: Yes (Hospitalization, Disabling, Other)
  Sender: FDA-Public Use
  Company Number: US-ROCHE-515381

PATIENT
  Sex: Male
  Weight: 98.2 kg

DRUGS (15)
  1. PEG-INTERFERON ALFA 2A (RO 25-8310) [Suspect]
     Dosage: DOSE BLINDED.
     Route: 058
     Dates: start: 20070507, end: 20070730
  2. PEG-INTERFERON ALFA 2A (RO 25-8310) [Suspect]
     Dosage: DOSAGE FORM: VIAL. 180 MCG IN 1 ML SOLUTION ADMINISTERED SUBCUTANEOUS ONCE WEEKLY FOR 36 WEEKS. FOR+
     Route: 058
     Dates: start: 20070731, end: 20070904
  3. RIBAVIRIN [Suspect]
     Dosage: DOSE BLINDED.
     Route: 048
     Dates: start: 20070507, end: 20070730
  4. RIBAVIRIN [Suspect]
     Dosage: PERMANENTLY DISCONTINUED ON 4 SEP 2007, DOSE: 600 VS 800 MG
     Route: 048
     Dates: start: 20070731, end: 20070904
  5. LAMICTAL [Suspect]
     Indication: DRUG USE FOR UNKNOWN INDICATION
     Route: 065
  6. CYMBALTA [Suspect]
     Indication: DRUG USE FOR UNKNOWN INDICATION
     Route: 065
  7. KEPPRA [Suspect]
     Indication: DRUG USE FOR UNKNOWN INDICATION
     Route: 065
  8. DYAZIDE [Suspect]
     Indication: DRUG USE FOR UNKNOWN INDICATION
     Route: 065
  9. ACIPHEX [Suspect]
     Indication: DRUG USE FOR UNKNOWN INDICATION
     Route: 065
  10. PREDNISONE [Suspect]
     Indication: DRUG USE FOR UNKNOWN INDICATION
     Route: 048
     Dates: start: 20070831
  11. SINGULAIR [Concomitant]
  12. ALBUTEROL [Concomitant]
  13. MULTIVITAMIN NOS [Concomitant]
  14. PRILOSEC [Concomitant]
  15. CELLCEPT [Concomitant]

REACTIONS (6)
  - BLINDNESS [None]
  - GAIT DISTURBANCE [None]
  - GLAUCOMA [None]
  - METABOLIC ENCEPHALOPATHY [None]
  - MYODESOPSIA [None]
  - RETINAL DETACHMENT [None]
